FAERS Safety Report 8264178-4 (Version None)
Quarter: 2012Q2

REPORT INFORMATION
  Report Type: 
  Country: None (occurrence: None)
  Receive Date: 20120403
  Receipt Date: 20120325
  Transmission Date: 20120825
  Serious: Yes (Other)
  Sender: FDA-Public Use
  Company Number: 2012SP016125

PATIENT
  Sex: Male

DRUGS (3)
  1. RIBAVIRIN [Suspect]
     Indication: HEPATITIS C
     Dosage: UNK;UNK
     Dates: start: 20120312
  2. PEG-INTRON [Suspect]
     Indication: HEPATITIS C
     Dosage: UNK;UNK
     Dates: start: 20120312
  3. TELAPREVIR [Suspect]
     Indication: HEPATITIS C
     Dosage: UNK;UNK
     Dates: start: 20120312

REACTIONS (1)
  - HAEMATOCHEZIA [None]
